FAERS Safety Report 8943278 (Version 1)
Quarter: 2012Q4

REPORT INFORMATION
  Report Type: 
  Country: DE (occurrence: DE)
  Receive Date: 20121204
  Receipt Date: 20121204
  Transmission Date: 20130627
  Serious: Yes (Hospitalization, Other)
  Sender: FDA-Public Use
  Company Number: DE-ELI_LILLY_AND_COMPANY-DE201211007085

PATIENT
  Age: 61 Year
  Sex: Female

DRUGS (5)
  1. FORSTEO [Suspect]
     Indication: OSTEOPOROSIS
     Dosage: UNK, qd
     Route: 058
     Dates: start: 20120504
  2. CYMBALTA [Concomitant]
     Dosage: UNK, unknown
     Route: 065
  3. METHOTREXATE [Concomitant]
     Dosage: UNK, unknown
     Route: 065
  4. CELEBREX [Concomitant]
     Dosage: UNK, each evening
     Route: 065
  5. TILIDIN [Concomitant]
     Dosage: UNK, each morning
     Route: 065

REACTIONS (2)
  - Tibia fracture [Not Recovered/Not Resolved]
  - Fall [Recovered/Resolved]
